FAERS Safety Report 21855255 (Version 1)
Quarter: 2023Q1

REPORT INFORMATION
  Report Type: Spontaneous
  Country: US (occurrence: US)
  Receive Date: 20230112
  Receipt Date: 20230112
  Transmission Date: 20230418
  Serious: No
  Sender: FDA-Public Use
  Company Number: US-TAKEDA-2023TUS002488

PATIENT

DRUGS (1)
  1. LIVTENCITY [Suspect]
     Active Substance: MARIBAVIR
     Indication: Transplant
     Dosage: 400 MILLIGRAM, BID
     Route: 065
     Dates: end: 20220930

REACTIONS (2)
  - Viral load abnormal [Unknown]
  - Drug resistance [Unknown]
